FAERS Safety Report 6251961-X (Version None)
Quarter: 2009Q2

REPORT INFORMATION
  Report Type: 
  Country: None (occurrence: None)
  Receive Date: 20090630
  Receipt Date: 20090618
  Transmission Date: 20091009
  Serious: Yes (Death)
  Sender: FDA-Public Use
  Company Number: FR-ELI_LILLY_AND_COMPANY-FR200906004488

PATIENT
  Sex: Female

DRUGS (1)
  1. PROZAC [Suspect]
     Route: 048

REACTIONS (1)
  - COMPLETED SUICIDE [None]
